FAERS Safety Report 20222204 (Version 1)
Quarter: 2021Q4

REPORT INFORMATION
  Report Type: Spontaneous
  Country: US (occurrence: US)
  Receive Date: 20211223
  Receipt Date: 20211223
  Transmission Date: 20220304
  Serious: Yes (Death, Other)
  Sender: FDA-Public Use
  Company Number: US-ORGANON-O2112USA002046

PATIENT
  Age: 39 Year
  Sex: Male

DRUGS (3)
  1. REMERON [Suspect]
     Active Substance: MIRTAZAPINE
     Dosage: UNK
     Route: 065
  2. FENTANYL [Suspect]
     Active Substance: FENTANYL
     Dosage: UNK
     Route: 065
  3. BUPROPION [Suspect]
     Active Substance: BUPROPION
     Dosage: UNK
     Route: 065

REACTIONS (1)
  - Drug abuse [Fatal]
